FAERS Safety Report 5692950-3 (Version None)
Quarter: 2008Q2

REPORT INFORMATION
  Report Type: 
  Country: None (occurrence: None)
  Receive Date: 20080403
  Receipt Date: 20080331
  Transmission Date: 20081010
  Serious: Yes (Hospitalization)
  Sender: FDA-Public Use
  Company Number: JP-SP-2008-00877

PATIENT
  Age: 77 Year
  Sex: Male

DRUGS (2)
  1. IMMUCYST [Suspect]
     Indication: BLADDER CANCER
     Route: 043
     Dates: start: 20060106, end: 20060227
  2. IMMUCYST [Suspect]
     Route: 043
     Dates: start: 20060106, end: 20060227

REACTIONS (3)
  - FATIGUE [None]
  - HAEMATURIA [None]
  - PYREXIA [None]
